FAERS Safety Report 8063624-9 (Version None)
Quarter: 2011Q4

REPORT INFORMATION
  Report Type: 
  Country: None (occurrence: None)
  Receive Date: 20111220
  Receipt Date: 20110412
  Transmission Date: 20120403
  Serious: Yes (Hospitalization, Other)
  Sender: FDA-Public Use
  Company Number: 2011001822

PATIENT
  Age: 47 Year
  Sex: Male
  Weight: 100.6985 kg

DRUGS (4)
  1. PREDNISONE [Concomitant]
  2. DIAZEPAM [Concomitant]
  3. ACTIQ [Suspect]
     Indication: CANCER PAIN
     Dosage: 25600 MCG (3200 MCG, 1 IN 3 HR), BU, 12800 MCG (1600 MCG, 8 IN 1D), BU
     Route: 002
  4. LYRICA [Concomitant]

REACTIONS (4)
  - DRUG PRESCRIBING ERROR [None]
  - PAIN [None]
  - TREMOR [None]
  - DRUG INEFFECTIVE [None]
